FAERS Safety Report 23886042 (Version 2)
Quarter: 2024Q3

REPORT INFORMATION
  Report Type: Report from Study
  Country: CA (occurrence: CA)
  Receive Date: 20240522
  Receipt Date: 20240806
  Transmission Date: 20241016
  Serious: Yes (Other)
  Sender: GLAXOSMITHKLINE
  Company Number: CA-GLAXOSMITHKLINE-CA2023GSK132647

PATIENT

DRUGS (11)
  1. BUPROPION HYDROCHLORIDE [Interacting]
     Active Substance: BUPROPION HYDROCHLORIDE
     Indication: Bipolar disorder
     Dosage: 100 MG, BID
     Route: 048
     Dates: start: 20240213
  2. BUPROPION HYDROCHLORIDE [Interacting]
     Active Substance: BUPROPION HYDROCHLORIDE
     Dosage: UNK
  3. CONTRAVE [Interacting]
     Active Substance: BUPROPION HYDROCHLORIDE\NALTREXONE HYDROCHLORIDE
     Indication: Weight control
     Dosage: UNK, 90/8 MG
     Route: 048
     Dates: start: 202302, end: 20230627
  4. CONTRAVE [Interacting]
     Active Substance: BUPROPION HYDROCHLORIDE\NALTREXONE HYDROCHLORIDE
     Dosage: 2 DF, BID, 90/8 MG, 2 TABLET Q AM, 2 TABLET Q PM
     Route: 048
     Dates: start: 20230628, end: 20231111
  5. CONTRAVE [Interacting]
     Active Substance: BUPROPION HYDROCHLORIDE\NALTREXONE HYDROCHLORIDE
     Dosage: UNK UNK, BID, 90/8 MG, 3 TABLET Q AM, 1 TABLET Q PM
     Route: 048
     Dates: start: 20231112, end: 20231113
  6. CONTRAVE [Interacting]
     Active Substance: BUPROPION HYDROCHLORIDE\NALTREXONE HYDROCHLORIDE
     Dosage: 2 DF, BID, 90/8 MG, 2 TABLET Q AM, 2 TABLET Q PM
     Route: 048
     Dates: start: 20231114, end: 20240121
  7. CONTRAVE [Interacting]
     Active Substance: BUPROPION HYDROCHLORIDE\NALTREXONE HYDROCHLORIDE
     Dosage: UNK UNK, BID, 90/8 MG,2 TAB Q AM, 1 TAB Q PM (1 IN 12 HR)
     Route: 048
     Dates: start: 20240122, end: 20240212
  8. CONTRAVE [Interacting]
     Active Substance: BUPROPION HYDROCHLORIDE\NALTREXONE HYDROCHLORIDE
     Dosage: 1 DF, BID,90/8 MG,1 TAB Q AM, 1 TAB Q PM (1 DOSAGE FORMS,1 IN 12 HR)
     Route: 048
     Dates: start: 20240213, end: 20240309
  9. CONTRAVE [Interacting]
     Active Substance: BUPROPION HYDROCHLORIDE\NALTREXONE HYDROCHLORIDE
     Dosage: 2 DF, BID,90/8 MG,2 TAB Q AM, 2 TAB Q PM (2 DOSAGE FORMS,1 IN 12 HR)
     Route: 048
     Dates: start: 20240310
  10. SEROQUEL [Concomitant]
     Active Substance: QUETIAPINE FUMARATE
     Indication: Depression
     Dosage: 1 DF, QD (BEDTIME)
     Route: 048
  11. SEROQUEL [Concomitant]
     Active Substance: QUETIAPINE FUMARATE
     Indication: Bipolar disorder

REACTIONS (14)
  - Helicobacter infection [Not Recovered/Not Resolved]
  - Mania [Recovered/Resolved]
  - Poor quality sleep [Recovering/Resolving]
  - Weight increased [Recovering/Resolving]
  - Nausea [Not Recovered/Not Resolved]
  - Abnormal dreams [Not Recovered/Not Resolved]
  - Abdominal pain upper [Unknown]
  - Brain natriuretic peptide increased [Not Recovered/Not Resolved]
  - Patient dissatisfaction with treatment [Unknown]
  - Contraindicated product prescribed [Unknown]
  - Contraindicated product administered [Unknown]
  - Labelled drug-drug interaction issue [Unknown]
  - Intentional underdose [Unknown]
  - Intentional product use issue [Unknown]

NARRATIVE: CASE EVENT DATE: 20230201
